FAERS Safety Report 7575287-7 (Version None)
Quarter: 2011Q2

REPORT INFORMATION
  Report Type: 
  Country: None (occurrence: None)
  Receive Date: 20110627
  Receipt Date: 20110624
  Transmission Date: 20111010
  Serious: Yes (Other)
  Sender: FDA-Public Use
  Company Number: US-PFIZER INC-2011141315

PATIENT
  Sex: Female
  Weight: 55.33 kg

DRUGS (3)
  1. LIPITOR [Suspect]
     Indication: CARDIAC OPERATION
     Dosage: 20 MG, DAILY
     Dates: start: 20101101
  2. METOPROLOL [Concomitant]
     Indication: BLOOD PRESSURE ABNORMAL
     Dosage: UNK
  3. LISINOPRIL [Concomitant]
     Indication: BLOOD PRESSURE ABNORMAL
     Dosage: 2.5 MG, DAILY

REACTIONS (3)
  - MUSCULOSKELETAL PAIN [None]
  - URINARY TRACT INFECTION [None]
  - MYALGIA [None]
